FAERS Safety Report 24096383 (Version 1)
Quarter: 2024Q3

REPORT INFORMATION
  Report Type: Spontaneous
  Country: CN (occurrence: CN)
  Receive Date: 20240716
  Receipt Date: 20240716
  Transmission Date: 20241017
  Serious: Yes (Other)
  Sender: RANBAXY
  Company Number: CN-SUN PHARMACEUTICAL INDUSTRIES LTD-2024R1-456179

PATIENT
  Age: 65 Year
  Sex: Female

DRUGS (7)
  1. CETIRIZINE [Suspect]
     Active Substance: CETIRIZINE HYDROCHLORIDE
     Indication: Eczema
     Dosage: UNK
     Route: 048
  2. EBASTINE [Suspect]
     Active Substance: EBASTINE
     Indication: Eczema
     Dosage: UNK
     Route: 048
  3. LORATADINE [Suspect]
     Active Substance: LORATADINE
     Indication: Eczema
     Dosage: UNK
     Route: 048
  4. MOMETASONE [Suspect]
     Active Substance: MOMETASONE
     Indication: Eczema
     Dosage: UNK
     Route: 061
  5. GLYCYRRHIZIN [Suspect]
     Active Substance: GLYCYRRHIZIN
     Indication: Eczema
     Dosage: UNK
     Route: 048
  6. TRIAMCINOLONE [Suspect]
     Active Substance: TRIAMCINOLONE
     Indication: Eczema
     Dosage: UNK
     Route: 061
  7. TRIAMCINOLONE [Suspect]
     Active Substance: TRIAMCINOLONE
     Indication: Eczema
     Dosage: UNK
     Route: 061

REACTIONS (2)
  - Condition aggravated [Unknown]
  - Treatment failure [Unknown]
